FAERS Safety Report 9391403 (Version 2)
Quarter: 2013Q3

REPORT INFORMATION
  Report Type: Spontaneous
  Country: US (occurrence: US)
  Receive Date: 20130709
  Receipt Date: 20130822
  Transmission Date: 20140515
  Serious: Yes (Life-Threatening, Other)
  Sender: FDA-Public Use
  Company Number: US-ASTELLAS-2013US007056

PATIENT
  Age: 52 Year
  Sex: Male
  Weight: 72 kg

DRUGS (1)
  1. PROGRAF [Suspect]
     Indication: LIVER TRANSPLANT
     Dosage: 5 MG, BID
     Route: 048
     Dates: start: 20110324

REACTIONS (6)
  - Liver transplant [Recovered/Resolved]
  - Thrombosis in device [Recovered/Resolved]
  - Graft thrombosis [Recovered/Resolved]
  - Bile duct obstruction [Unknown]
  - Cardiac arrest [Recovered/Resolved]
  - Hypoacusis [Not Recovered/Not Resolved]
